FAERS Safety Report 7794536-3 (Version None)
Quarter: 2011Q4

REPORT INFORMATION
  Report Type: 
  Country: None (occurrence: None)
  Receive Date: 20111004
  Receipt Date: 20110920
  Transmission Date: 20120403
  Serious: Yes (Hospitalization, Other)
  Sender: FDA-Public Use
  Company Number: DE-CELGENEUS-062-21880-09111201

PATIENT
  Age: 71 Year
  Sex: Male
  Weight: 82 kg

DRUGS (10)
  1. REVLIMID [Suspect]
     Dosage: 15 MILLIGRAM
     Route: 048
     Dates: start: 20091218
  2. DEXAMETHASONE [Suspect]
     Indication: PROSTATE CANCER
     Dosage: 1.5 MILLIGRAM
     Route: 048
     Dates: start: 20081001
  3. DEXAMETHASONE [Suspect]
     Dosage: .75 MILLIGRAM
     Route: 048
     Dates: start: 20091218
  4. CELECOXIB [Suspect]
     Indication: PROSTATE CANCER
     Dosage: 400 MILLIGRAM
     Route: 065
     Dates: start: 20081001
  5. ACETYLSALICYLACID [Concomitant]
     Indication: PROPHYLAXIS
     Dosage: 100 MILLIGRAM
     Route: 065
  6. METOPROLOL TARTRATE [Concomitant]
     Indication: HYPERTENSION
     Route: 065
  7. REVLIMID [Suspect]
     Dosage: 25 MILLIGRAM
     Route: 048
     Dates: start: 20110415, end: 20110609
  8. METFORMIN HCL [Concomitant]
     Dosage: 3 GRAM
     Route: 065
     Dates: start: 20110720
  9. REVLIMID [Suspect]
     Indication: PROSTATE CANCER
     Dosage: 25 MILLIGRAM
     Route: 048
     Dates: start: 20090914, end: 20091217
  10. REVLIMID [Suspect]
     Dosage: 25 MILLIGRAM
     Route: 048
     Dates: start: 20110610, end: 20110803

REACTIONS (8)
  - CARBUNCLE [None]
  - DEHYDRATION [None]
  - FATIGUE [None]
  - ARTHRALGIA [None]
  - CUSHING'S SYNDROME [None]
  - NEUROPATHY PERIPHERAL [None]
  - DYSGEUSIA [None]
  - SYNCOPE [None]
